FAERS Safety Report 7762977-6 (Version None)
Quarter: 2011Q3

REPORT INFORMATION
  Report Type: 
  Country: None (occurrence: None)
  Receive Date: 20110920
  Receipt Date: 20110909
  Transmission Date: 20111222
  Serious: Yes (Other)
  Sender: FDA-Public Use
  Company Number: CA-JNJFOC-20110905336

PATIENT
  Sex: Female
  Weight: 68 kg

DRUGS (6)
  1. REMICADE [Suspect]
     Route: 042
     Dates: start: 20110825
  2. ELAVIL [Concomitant]
  3. NEXIUM [Concomitant]
  4. REMICADE [Suspect]
     Indication: ANKYLOSING SPONDYLITIS
     Route: 042
     Dates: start: 20110811
  5. OTHER THERAPEUTIC MEDICATION [Concomitant]
  6. CELEBREX [Concomitant]

REACTIONS (1)
  - DEVICE DISLOCATION [None]
